FAERS Safety Report 4833362-1 (Version None)
Quarter: 2005Q4

REPORT INFORMATION
  Report Type: 
  Country: None (occurrence: None)
  Receive Date: 20051118
  Receipt Date: 20051104
  Transmission Date: 20060501
  Serious: Yes (Hospitalization)
  Sender: FDA-Public Use
  Company Number: KII-2005-0019478

PATIENT
  Age: 29 Year
  Sex: Female

DRUGS (3)
  1. OXYCONTIN [Suspect]
     Dosage: ORAL
     Route: 048
  2. HYDROCODONE W/ACETAMINOPHEN(DEXTROPROPOXYPHENE HYDROCHLORIDE) [Suspect]
     Dosage: ORAL
     Route: 048
  3. PROPOXYPHENE HCL AND ACETAMINOPHEN [Suspect]
     Dosage: ORAL
     Route: 048

REACTIONS (4)
  - DEPRESSION [None]
  - DRUG EXPOSURE DURING PREGNANCY [None]
  - MULTIPLE DRUG OVERDOSE [None]
  - UTERINE CONTRACTIONS ABNORMAL [None]
